FAERS Safety Report 8972749 (Version 2)
Quarter: 2012Q4

REPORT INFORMATION
  Report Type: 
  Country: CO (occurrence: CO)
  Receive Date: 20121218
  Receipt Date: 20121227
  Transmission Date: 20130627
  Serious: Yes (Other)
  Sender: FDA-Public Use
  Company Number: CO-ROCHE-1170764

PATIENT
  Sex: Male

DRUGS (8)
  1. LUCENTIS [Suspect]
     Indication: RETINOPATHY
     Dosage: 1 ampoule monthly
     Route: 050
     Dates: start: 20120609, end: 20121119
  2. METFORMIN [Concomitant]
  3. FUROSEMIDE [Concomitant]
  4. LANITOP [Concomitant]
  5. ASAWIN [Concomitant]
  6. CILOSTAZOL [Concomitant]
  7. METOPROLOL [Concomitant]
  8. LOSARTAN [Concomitant]

REACTIONS (2)
  - Diabetic retinopathy [Unknown]
  - Cataract [Unknown]
